FAERS Safety Report 5278592-2 (Version None)
Quarter: 2007Q1

REPORT INFORMATION
  Report Type: 
  Country: None (occurrence: None)
  Receive Date: 20070328
  Receipt Date: 20070327
  Transmission Date: 20070707
  Serious: Yes (Hospitalization, Other)
  Sender: FDA-Public Use
  Company Number: US-GLAXOSMITHKLINE-A0640977A

PATIENT
  Age: 43 Year
  Sex: Male
  Weight: 95.3 kg

DRUGS (13)
  1. FLOLAN [Suspect]
     Dosage: 10NGKM UNKNOWN
     Route: 042
     Dates: start: 20070105
  2. COZAAR [Concomitant]
     Dosage: 50MG PER DAY
     Route: 048
  3. LASIX [Concomitant]
     Dosage: 40MG PER DAY
     Route: 048
  4. SILDENAFIL CITRATE [Concomitant]
     Dosage: 20MG THREE TIMES PER DAY
     Route: 048
  5. METFORMIN HYDROCHLORIDE [Concomitant]
     Dosage: 1000MG TWICE PER DAY
     Route: 048
  6. RHINOCORT AQUA [Concomitant]
     Dosage: 1PUFF PER DAY
     Route: 045
  7. CLARITIN [Concomitant]
     Dosage: 10MG PER DAY
     Route: 048
  8. CALCIUM [Concomitant]
     Dosage: 600MG TWICE PER DAY
     Route: 048
  9. WARFARIN SODIUM [Concomitant]
     Route: 048
  10. MAGNESIUM OXIDE [Concomitant]
     Dosage: 400MG PER DAY
     Route: 048
  11. UNKNOWN MEDICATION [Concomitant]
     Dosage: 500MG PER DAY
     Route: 048
  12. MULTI-VITAMIN [Concomitant]
     Dosage: 1CAP PER DAY
     Route: 048
  13. POTASSIUM CHLORIDE [Concomitant]
     Dosage: 10MEQ PER DAY
     Route: 048

REACTIONS (2)
  - CATHETER RELATED COMPLICATION [None]
  - PHARMACEUTICAL PRODUCT COMPLAINT [None]
